FAERS Safety Report 24166027 (Version 1)
Quarter: 2024Q3

REPORT INFORMATION
  Report Type: Report from Study
  Country: GR (occurrence: GR)
  Receive Date: 20240802
  Receipt Date: 20240802
  Transmission Date: 20241017
  Serious: Yes (Other)
  Sender: ABBVIE
  Company Number: GR-ABBVIE-5850331

PATIENT
  Age: 79 Year
  Sex: Female

DRUGS (3)
  1. CARBIDOPA\LEVODOPA [Suspect]
     Active Substance: CARBIDOPA\LEVODOPA
     Indication: Parkinson^s disease
     Dosage: MORNING DOSE: 9.5ML; CONTINUOUS RATE: 2.2ML/H; EXTRA DOSE: 1.0ML
     Route: 050
     Dates: start: 20221031
  2. CARBIDOPA\LEVODOPA [Suspect]
     Active Substance: CARBIDOPA\LEVODOPA
     Dosage: MORNING DOSE: 9.5ML; CONTINUOUS RATE: 2.2ML/H; EXTRA DOSE: 1.0ML
     Route: 050
  3. CARBIDOPA\LEVODOPA [Suspect]
     Active Substance: CARBIDOPA\LEVODOPA
     Dosage: MORNING DOSE: 9.5ML; CONTINUOUS RATE: 2.2ML/H; EXTRA DOSE: 1.0ML
     Route: 050
     Dates: end: 20240725

REACTIONS (5)
  - Embedded device [Recovered/Resolved]
  - Device dislocation [Unknown]
  - Abdominal pain [Unknown]
  - Intestinal ulcer [Not Recovered/Not Resolved]
  - Bezoar [Recovered/Resolved]

NARRATIVE: CASE EVENT DATE: 20240719
